FAERS Safety Report 11641377 (Version 1)
Quarter: 2015Q4

REPORT INFORMATION
  Report Type: Spontaneous
  Country: US (occurrence: US)
  Receive Date: 20151019
  Receipt Date: 20151019
  Transmission Date: 20160304
  Serious: No
  Sender: FDA-Public Use
  Company Number: US-WARNER CHILCOTT, LLC-1043127

PATIENT
  Age: 64 Year
  Sex: Female

DRUGS (3)
  1. FEMHRT [Suspect]
     Active Substance: ETHINYL ESTRADIOL\NORETHINDRONE ACETATE
     Indication: HOT FLUSH
     Route: 048
     Dates: start: 2013
  2. MULTIVIT [Concomitant]
     Active Substance: VITAMINS
  3. FEMHRT [Suspect]
     Active Substance: ETHINYL ESTRADIOL\NORETHINDRONE ACETATE
     Dates: start: 2014, end: 201411

REACTIONS (2)
  - Eye disorder [Recovered/Resolved]
  - Vision blurred [Recovered/Resolved]
